FAERS Safety Report 9307029 (Version 5)
Quarter: 2014Q2

REPORT INFORMATION
  Report Type: Spontaneous
  Country: US (occurrence: US)
  Receive Date: 20130523
  Receipt Date: 20140429
  Transmission Date: 20141212
  Serious: No
  Sender: FDA-Public Use
  Company Number: US-009507513-1305USA012266

PATIENT
  Sex: Male

DRUGS (8)
  1. PROPECIA [Suspect]
     Indication: ALOPECIA
     Dosage: 1 MG, QD
     Route: 048
     Dates: start: 20050316, end: 20061002
  2. PROPECIA [Suspect]
     Dosage: 1 MG, QD
     Route: 048
     Dates: start: 20070115, end: 20080805
  3. PROPECIA [Suspect]
     Dosage: 1 MG, QD
     Route: 048
     Dates: start: 20081007, end: 20090814
  4. PROPECIA [Suspect]
     Dosage: 1 MG, QD
     Route: 048
     Dates: start: 20090529
  5. PROPECIA [Suspect]
     Dosage: 1 MG, QD
     Route: 048
     Dates: start: 20090925, end: 20100527
  6. PROPECIA [Suspect]
     Dosage: 1 MG, QD
     Route: 048
     Dates: start: 20100630, end: 20110608
  7. PROPECIA [Suspect]
     Dosage: 1 MG, QD
     Route: 048
     Dates: start: 20110708
  8. TUSSIONEX (BROMHEXINE HYDROCHLORIDE) [Concomitant]
     Indication: HYPERSENSITIVITY
     Dosage: UNK
     Dates: start: 20080421

REACTIONS (25)
  - Fatigue [Unknown]
  - Asthenia [Unknown]
  - Anxiety [Not Recovered/Not Resolved]
  - Sexually transmitted disease [Unknown]
  - Sexually transmitted disease [Unknown]
  - Rheumatoid arthritis [Unknown]
  - Skin disorder [Unknown]
  - Fibromyalgia [Unknown]
  - Insomnia [Unknown]
  - Schizophrenia [Unknown]
  - Bipolar disorder [Unknown]
  - Osteoarthritis [Unknown]
  - Seasonal allergy [Unknown]
  - Dyspepsia [Unknown]
  - Limb operation [Unknown]
  - Perirectal abscess [Unknown]
  - Staphylococcal infection [Unknown]
  - Arthralgia [Unknown]
  - Pain in extremity [Unknown]
  - Erectile dysfunction [Not Recovered/Not Resolved]
  - Depression [Not Recovered/Not Resolved]
  - Sexual dysfunction [Not Recovered/Not Resolved]
  - Haematochezia [Unknown]
  - Urinary incontinence [Unknown]
  - Genital rash [Unknown]
